FAERS Safety Report 9934235 (Version 2)
Quarter: 2014Q2

REPORT INFORMATION
  Report Type: Spontaneous
  Country: ES (occurrence: ES)
  Receive Date: 20140228
  Receipt Date: 20140612
  Transmission Date: 20141212
  Serious: Yes (Hospitalization)
  Sender: FDA-Public Use
  Company Number: ES-CUBIST PHARMACEUTICAL, INC.-2014CBST000300

PATIENT
  Sex: 0

DRUGS (3)
  1. CUBICIN [Suspect]
     Indication: ENDOCARDITIS ENTEROCOCCAL
     Dosage: 8 MG/KG DAILY
     Route: 042
  2. CUBICIN [Suspect]
     Indication: DEVICE RELATED INFECTION
  3. CUBICIN [Suspect]
     Indication: OFF LABEL USE

REACTIONS (4)
  - Cardiac valve vegetation [Recovered/Resolved]
  - Condition aggravated [Recovered/Resolved]
  - Pyrexia [Recovered/Resolved]
  - Drug ineffective for unapproved indication [Unknown]
